FAERS Safety Report 6149041-7 (Version None)
Quarter: 2009Q2

REPORT INFORMATION
  Report Type: 
  Country: None (occurrence: None)
  Receive Date: 20090409
  Receipt Date: 20090405
  Transmission Date: 20091009
  Serious: Yes (Other)
  Sender: FDA-Public Use
  Company Number: MX-JNJFOC-20090401512

PATIENT
  Sex: Female

DRUGS (2)
  1. ELEQUINE [Suspect]
     Indication: KIDNEY INFECTION
     Route: 048
  2. TYLEX 750 [Concomitant]
     Indication: HEADACHE
     Route: 048

REACTIONS (3)
  - HEAD DISCOMFORT [None]
  - HEADACHE [None]
  - PULSE ABSENT [None]
